FAERS Safety Report 19013939 (Version 1)
Quarter: 2021Q1

REPORT INFORMATION
  Report Type: Spontaneous
  Country: US (occurrence: US)
  Receive Date: 20210316
  Receipt Date: 20210316
  Transmission Date: 20210420
  Serious: Yes (Other)
  Sender: FDA-Public Use
  Company Number: US-BAYER-2021-097092

PATIENT
  Sex: Female

DRUGS (1)
  1. GADAVIST [Suspect]
     Active Substance: GADOBUTROL
     Indication: ANGIOGRAM
     Dosage: UNK
     Dates: start: 20181216

REACTIONS (23)
  - Rash [None]
  - Fatigue [None]
  - Amnesia [None]
  - Asthenia [None]
  - Menstruation irregular [None]
  - Emergency care [None]
  - Emotional distress [None]
  - Hypoaesthesia [None]
  - Paraesthesia [None]
  - Confusional state [None]
  - Pyrexia [None]
  - Muscle spasms [None]
  - Gadolinium deposition disease [None]
  - Restless legs syndrome [None]
  - Nausea [None]
  - Insomnia [None]
  - Dizziness [None]
  - Injury [None]
  - Anxiety [None]
  - Pain [None]
  - Alopecia [None]
  - Headache [None]
  - Decreased appetite [None]
